FAERS Safety Report 15755195 (Version 1)
Quarter: 2018Q4

REPORT INFORMATION
  Report Type: Spontaneous
  Country: GB (occurrence: GB)
  Receive Date: 20181224
  Receipt Date: 20181224
  Transmission Date: 20190205
  Serious: Yes (Hospitalization, Disabling, Other)
  Sender: FDA-Public Use
  Company Number: GB-ACCORD-097295

PATIENT
  Age: 87 Year
  Sex: Male
  Weight: 82 kg

DRUGS (13)
  1. LANSOPRAZOLE. [Concomitant]
     Active Substance: LANSOPRAZOLE
  2. BISACODYL. [Concomitant]
     Active Substance: BISACODYL
  3. ISOSORBIDE. [Concomitant]
     Active Substance: ISOSORBIDE
  4. HUMULIN M3 [Concomitant]
     Active Substance: INSULIN HUMAN
  5. RAMIPRIL. [Concomitant]
     Active Substance: RAMIPRIL
  6. ANORO ELLIPTA [Concomitant]
     Active Substance: UMECLIDINIUM BROMIDE\VILANTEROL TRIFENATATE
  7. SIMVASTATIN. [Concomitant]
     Active Substance: SIMVASTATIN
  8. THIAMINE. [Concomitant]
     Active Substance: THIAMINE
  9. OXYBUTYNIN/OXYBUTYNIN HYDROCHLORIDE [Suspect]
     Active Substance: OXYBUTYNIN
     Indication: POLLAKIURIA
     Route: 048
     Dates: end: 20171121
  10. DOCUSATE/DOCUSATE CALCIUM/DOCUSATE POTASSIUM/DOCUSATE SODIUM [Concomitant]
  11. PARACETAMOL [Concomitant]
     Active Substance: ACETAMINOPHEN
  12. ATENOLOL/ATENOLOL HYDROCHLORIDE [Concomitant]
  13. VITAMIN B COMPLEX STRONG [Concomitant]

REACTIONS (1)
  - Sinus node dysfunction [Not Recovered/Not Resolved]

NARRATIVE: CASE EVENT DATE: 20171119
